FAERS Safety Report 5022435-9 (Version None)
Quarter: 2006Q2

REPORT INFORMATION
  Report Type: 
  Country: None (occurrence: None)
  Receive Date: 20060605
  Receipt Date: 20060525
  Transmission Date: 20061013
  Serious: Yes (Disabling, Other)
  Sender: FDA-Public Use
  Company Number: 2006-05-1951

PATIENT
  Sex: Male

DRUGS (1)
  1. RINDERON A (FRADIOMYCIN  SULFATE / BETAMETHASONE SODIUM  NASAL SOLUTIO [Suspect]
     Indication: EUSTACHIAN TUBE DISORDER
     Dosage: QD INTRANASAL
     Route: 045
     Dates: start: 20050318, end: 20060105

REACTIONS (2)
  - DEAFNESS [None]
  - DRUG INEFFECTIVE [None]
